FAERS Safety Report 7473332-0 (Version None)
Quarter: 2011Q2

REPORT INFORMATION
  Report Type: 
  Country: None (occurrence: None)
  Receive Date: 20110503
  Receipt Date: 20110419
  Transmission Date: 20111010
  Serious: Yes (Other)
  Sender: FDA-Public Use
  Company Number: 201104061

PATIENT
  Age: 63 Year
  Sex: Male
  Weight: 114.3065 kg

DRUGS (9)
  1. TESTIM [Suspect]
     Indication: BLOOD TESTOSTERONE DECREASED
     Dosage: 50 MG, 1 IN 1 D, TRANSDERMAL
     Route: 062
     Dates: start: 20110325, end: 20110331
  2. WELLBUTRIN [Concomitant]
  3. CLONAZEPAM [Concomitant]
  4. NIASPAN [Concomitant]
  5. SYNTHROID [Concomitant]
  6. CARDIAZEM LA (DILTIAZEM) [Concomitant]
  7. BENICAR [Concomitant]
  8. TOPROL-XL [Concomitant]
  9. FENOFIBRATE [Concomitant]

REACTIONS (1)
  - THROMBOSIS [None]
